FAERS Safety Report 9301604 (Version 1)
Quarter: 2013Q2

REPORT INFORMATION
  Report Type: Spontaneous
  Country: US (occurrence: None)
  Receive Date: 20130520
  Receipt Date: 20130520
  Transmission Date: 20140414
  Serious: Yes (Life-Threatening, Hospitalization, Disabling, Other)
  Sender: FDA-Public Use
  Company Number: None

PATIENT
  Age: 48 Year
  Sex: Female
  Weight: 66.68 kg

DRUGS (1)
  1. ADIPEX [Suspect]
     Indication: WEIGHT CONTROL
     Dates: start: 2010, end: 2012

REACTIONS (2)
  - Cerebrovascular accident [None]
  - Overdose [None]
